FAERS Safety Report 15126475 (Version 2)
Quarter: 2018Q3

REPORT INFORMATION
  Report Type: Spontaneous
  Country: IL (occurrence: IL)
  Receive Date: 20180710
  Receipt Date: 20180802
  Transmission Date: 20181010
  Serious: Yes (Hospitalization, Other)
  Sender: FDA-Public Use
  Company Number: IL-BAYER-2018-112295

PATIENT
  Age: 65 Year
  Sex: Female

DRUGS (3)
  1. NEXAVAR [Suspect]
     Active Substance: SORAFENIB
     Indication: HEPATIC CANCER
     Dosage: UNK
  2. NEXAVAR [Suspect]
     Active Substance: SORAFENIB
     Indication: HEPATIC CANCER
     Dosage: DAILY DOSE 400 MG
  3. NEXAVAR [Suspect]
     Active Substance: SORAFENIB
     Indication: HEPATIC CANCER
     Dosage: UNK

REACTIONS (5)
  - Oedema [Recovered/Resolved]
  - Cellulitis [Recovered/Resolved]
  - Cerebrovascular accident [Recovering/Resolving]
  - Blindness [Recovering/Resolving]
  - Rash [None]

NARRATIVE: CASE EVENT DATE: 201806
